FAERS Safety Report 7232685-9 (Version None)
Quarter: 2011Q1

REPORT INFORMATION
  Report Type: 
  Country: None (occurrence: None)
  Receive Date: 20110110
  Receipt Date: 20110104
  Transmission Date: 20110831
  Serious: Yes (Disabling)
  Sender: FDA-Public Use
  Company Number: 2010SP060639

PATIENT
  Age: 34 Year
  Sex: Female

DRUGS (3)
  1. LYRICA [Concomitant]
  2. ACETAZOLAMIDE [Concomitant]
  3. SAPHRIS [Suspect]
     Indication: BIPOLAR DISORDER
     Dosage: 10 MG; QD; SL
     Route: 060
     Dates: start: 20100922, end: 20101025

REACTIONS (3)
  - PRODUCT TASTE ABNORMAL [None]
  - HYDROCEPHALUS [None]
  - NAUSEA [None]
